FAERS Safety Report 23256172 (Version 6)
Quarter: 2024Q3

REPORT INFORMATION
  Report Type: Spontaneous
  Country: US (occurrence: US)
  Receive Date: 20231204
  Receipt Date: 20240821
  Transmission Date: 20241016
  Serious: No
  Sender: BIOGEN
  Company Number: US-BIOGEN-2022BI01103810

PATIENT
  Sex: Female

DRUGS (2)
  1. TYSABRI [Suspect]
     Active Substance: NATALIZUMAB
     Indication: Multiple sclerosis
     Route: 050
     Dates: start: 20190422, end: 20240312
  2. TYSABRI [Suspect]
     Active Substance: NATALIZUMAB
     Dosage: END THERAPY DATE ALSO REPORTED AS 2-AUG-2017
     Route: 050
     Dates: start: 20110527, end: 20211210

REACTIONS (7)
  - Product dose omission issue [Unknown]
  - Amnesia [Not Recovered/Not Resolved]
  - Mental disorder [Unknown]
  - Memory impairment [Unknown]
  - Dementia [Unknown]
  - General physical health deterioration [Unknown]
  - Multiple sclerosis [Unknown]
